FAERS Safety Report 5676452-6 (Version None)
Quarter: 2008Q1

REPORT INFORMATION
  Report Type: 
  Country: None (occurrence: None)
  Receive Date: 20080321
  Receipt Date: 20080314
  Transmission Date: 20080703
  Serious: Yes (Hospitalization, Other)
  Sender: FDA-Public Use
  Company Number: US-BRISTOL-MYERS SQUIBB COMPANY-14116552

PATIENT
  Age: 70 Year
  Sex: Male
  Weight: 98 kg

DRUGS (7)
  1. WARFARIN SODIUM [Suspect]
     Indication: TRANSIENT ISCHAEMIC ATTACK
     Dosage: WARFARIN 5MG DAILY FOR 6 DAYS AND 2.5MG FOR 1 DAY
  2. HYDROCHLOROTHIAZIDE [Concomitant]
     Dosage: FOR 3 YEARS
  3. CARVEDILOL [Concomitant]
     Dosage: FOR 2 MONTHS
  4. POTASSIUM CHLORIDE [Concomitant]
     Dosage: 2 TABLETS BID FOR 5 YEARS
  5. ASPIRIN [Concomitant]
     Dosage: 81MG DAILY FOR 5 YEARS
  6. ROSUVASTATIN CALCIUM [Concomitant]
     Dosage: 10MG 1/2 TABLET DAILY FOR YEARS.
  7. LOSARTAN POTASSIUM [Concomitant]
     Dosage: FOR 3 YEARS

REACTIONS (2)
  - GALLBLADDER DISORDER [None]
  - NEOPLASM MALIGNANT [None]
